FAERS Safety Report 6992354-7 (Version None)
Quarter: 2010Q3

REPORT INFORMATION
  Report Type: 
  Country: None (occurrence: None)
  Receive Date: 20100917
  Receipt Date: 20100907
  Transmission Date: 20110219
  Serious: Yes (Other)
  Sender: FDA-Public Use
  Company Number: GB-BAYER-201039017GPV

PATIENT
  Age: 4 Year
  Sex: Female

DRUGS (1)
  1. ADALAT [Suspect]
     Indication: HYPERTENSION
     Route: 050

REACTIONS (2)
  - COMMUNICATION DISORDER [None]
  - DEVELOPMENTAL DELAY [None]
